FAERS Safety Report 7475124-5 (Version None)
Quarter: 2011Q2

REPORT INFORMATION
  Report Type: 
  Country: None (occurrence: None)
  Receive Date: 20110512
  Receipt Date: 20110428
  Transmission Date: 20111010
  Serious: Yes (Death, Hospitalization)
  Sender: FDA-Public Use
  Company Number: US-JNJFOC-20110504719

PATIENT
  Age: 50 Year
  Sex: Female
  Weight: 46.71 kg

DRUGS (38)
  1. ACYCLOVIR [Concomitant]
     Indication: PRODUCT USED FOR UNKNOWN INDICATION
  2. LOTRISONE [Concomitant]
     Indication: PRODUCT USED FOR UNKNOWN INDICATION
  3. REGLAN [Concomitant]
     Indication: PRODUCT USED FOR UNKNOWN INDICATION
  4. CLINDAMYCIN [Concomitant]
     Indication: PRODUCT USED FOR UNKNOWN INDICATION
  5. DECADRON [Concomitant]
     Indication: RHEUMATOID ARTHRITIS
  6. ESTROGENIC SUBSTANCE [Concomitant]
     Indication: PRODUCT USED FOR UNKNOWN INDICATION
  7. RANITIDINE [Concomitant]
     Indication: PRODUCT USED FOR UNKNOWN INDICATION
  8. CARBOPLATIN [Suspect]
     Indication: TONSIL CANCER
  9. DOXYCYCLINE [Concomitant]
     Indication: PRODUCT USED FOR UNKNOWN INDICATION
  10. CYMBALTA [Concomitant]
     Indication: PRODUCT USED FOR UNKNOWN INDICATION
  11. INVANZ [Concomitant]
     Indication: PRODUCT USED FOR UNKNOWN INDICATION
  12. FOLIC ACID [Concomitant]
     Indication: RHEUMATOID ARTHRITIS
  13. CALCIUM W/VITAMIN D [Concomitant]
     Indication: PRODUCT USED FOR UNKNOWN INDICATION
  14. RITUXAN [Suspect]
     Route: 042
  15. METHYLPREDNISOLONE [Suspect]
     Indication: RHEUMATOID ARTHRITIS
     Route: 042
  16. METHYLPREDNISOLONE [Suspect]
     Route: 042
  17. DIFLUCAN [Concomitant]
     Indication: PRODUCT USED FOR UNKNOWN INDICATION
  18. DARVOCET [Concomitant]
     Indication: RHEUMATOID ARTHRITIS
  19. LOVENOX [Concomitant]
     Indication: PRODUCT USED FOR UNKNOWN INDICATION
  20. NEXIUM [Concomitant]
     Indication: PRODUCT USED FOR UNKNOWN INDICATION
  21. LODINE [Concomitant]
     Indication: PRODUCT USED FOR UNKNOWN INDICATION
  22. REMICADE [Suspect]
     Indication: PRODUCT USED FOR UNKNOWN INDICATION
     Route: 042
  23. RITUXAN [Suspect]
     Route: 042
  24. RITUXAN [Suspect]
     Route: 042
  25. METHYLPREDNISOLONE [Suspect]
     Route: 042
  26. PREDNISONE [Suspect]
     Indication: PREMEDICATION
     Dosage: DOSE UNKNOWN, DAYS 2-14
     Route: 048
  27. PREDNISONE [Suspect]
     Route: 048
  28. METHOTREXATE [Concomitant]
     Indication: RHEUMATOID ARTHRITIS
  29. PROVIGIL [Concomitant]
     Indication: PRODUCT USED FOR UNKNOWN INDICATION
  30. OXYCONTIN [Concomitant]
     Indication: PRODUCT USED FOR UNKNOWN INDICATION
  31. RITUXAN [Suspect]
     Indication: RHEUMATOID ARTHRITIS
     Route: 042
  32. ERBITUX [Suspect]
     Indication: TONSIL CANCER
  33. PREDNISONE [Suspect]
     Indication: RHEUMATOID ARTHRITIS
     Dosage: DOSE UNKNOWN, DAYS 2-14
     Route: 048
  34. VIGAMOX [Concomitant]
     Indication: PRODUCT USED FOR UNKNOWN INDICATION
  35. METHYLPREDNISOLONE [Suspect]
     Indication: PREMEDICATION
     Route: 042
  36. PREDNISONE [Suspect]
     Route: 048
  37. FLUCONAZOLE [Concomitant]
     Indication: PRODUCT USED FOR UNKNOWN INDICATION
  38. LEVOTHYROXINE SODIUM [Concomitant]
     Indication: PRODUCT USED FOR UNKNOWN INDICATION

REACTIONS (2)
  - PROGRESSIVE MULTIFOCAL LEUKOENCEPHALOPATHY [None]
  - DEATH [None]
